FAERS Safety Report 25801267 (Version 1)
Quarter: 2025Q3

REPORT INFORMATION
  Report Type: Spontaneous
  Country: SY (occurrence: SY)
  Receive Date: 20250915
  Receipt Date: 20250915
  Transmission Date: 20251020
  Serious: Yes (Hospitalization)
  Sender: JUBILANT
  Company Number: SY-JUBILANT CADISTA PHARMACEUTICALS-2025JUB00101

PATIENT
  Age: 43 Year
  Sex: Female

DRUGS (1)
  1. METHYLPREDNISOLONE [Suspect]
     Active Substance: METHYLPREDNISOLONE
     Indication: Multiple sclerosis
     Dosage: 1000 MG DILUTED IN 150 ML OF 0.9% NORMAL SALINE
     Route: 042

REACTIONS (1)
  - Sinus bradycardia [Recovered/Resolved]
